FAERS Safety Report 16606809 (Version 1)
Quarter: 2019Q3

REPORT INFORMATION
  Report Type: Spontaneous
  Country: DE (occurrence: DE)
  Receive Date: 20190722
  Receipt Date: 20190722
  Transmission Date: 20191004
  Serious: Yes (Hospitalization)
  Sender: FDA-Public Use
  Company Number: DE-BAXTER-2019BAX013957

PATIENT
  Age: 59 Year
  Sex: Male
  Weight: 81 kg

DRUGS (13)
  1. PROPOFOL NORAMEDA 10 MG/ML EMULSION ZUR LNJEKTION/LNFUSION [Suspect]
     Active Substance: PROPOFOL
     Indication: PRODUCT USED FOR UNKNOWN INDICATION
     Dosage: NK NK, INTRAOPERATIVE ANESTHESIA, INJECTION/INFUSION SOLUTION
     Route: 042
  2. AKRINOR [Suspect]
     Active Substance: CAFEDRINE HYDROCHLORIDE\THEODRENALINE
     Indication: PRODUCT USED FOR UNKNOWN INDICATION
     Dosage: NK NK, INTRAOPERATIVE ANESTHESIA, INJECTION/INFUSION SOLUTION
     Route: 042
  3. ENOXAPARIN [Concomitant]
     Active Substance: ENOXAPARIN
     Indication: PRODUCT USED FOR UNKNOWN INDICATION
     Dosage: 0.4 ML, DAILY FOR FOUR WEEKS, INJECTION/INFUSION SOLUTION
     Route: 058
  4. COAPROVEL [Concomitant]
     Active Substance: HYDROCHLOROTHIAZIDE\IRBESARTAN
     Indication: PRODUCT USED FOR UNKNOWN INDICATION
     Dosage: 150/12.5 MG, 1-0-0-0, TABLET
     Route: 048
  5. LEVOFLOXACIN. [Suspect]
     Active Substance: LEVOFLOXACIN
     Indication: PRODUCT USED FOR UNKNOWN INDICATION
     Dosage: NK NK, NK, MOST RECENTLY ON 19MAR2018, TABLETS
     Route: 048
  6. PIRITRAMIDE [Suspect]
     Active Substance: PIRITRAMIDE
     Indication: PRODUCT USED FOR UNKNOWN INDICATION
     Dosage: NK NK, INTRAOPERATIVE ANESTHESIA, INJECTION SOLUTION FOR INFUSION
     Route: 042
  7. CEFUROXIM [Suspect]
     Active Substance: CEFUROXIME
     Indication: PRODUCT USED FOR UNKNOWN INDICATION
     Dosage: NK NK, ONE-TIME ADMINISTRATION INTRAOPERATIVE, INJECTION/ INFUSION SOLUTION
     Route: 042
  8. APROVEL [Concomitant]
     Active Substance: IRBESARTAN
     Indication: PRODUCT USED FOR UNKNOWN INDICATION
     Dosage: 75 MG, 0-0-1-0, TABLET
     Route: 048
  9. FENTANYL. [Suspect]
     Active Substance: FENTANYL
     Indication: PRODUCT USED FOR UNKNOWN INDICATION
     Dosage: NK NK, INTRAOPERATIVE ANESTHESIA, INJECTION/INFUSION SOLUTION
     Route: 042
  10. SUPRANE [Suspect]
     Active Substance: DESFLURANE
     Indication: PRODUCT USED FOR UNKNOWN INDICATION
     Dosage: NK NK, INTRAOPERATIVE ANESTHESIA, INHALED ANESTHETIC
     Route: 055
  11. METAMIZOL [Concomitant]
     Active Substance: METAMIZOLE SODIUM
     Indication: PRODUCT USED FOR UNKNOWN INDICATION
     Dosage: 500 MG, 1-1-1-1, AS NEEDED, TABLETS
     Route: 048
  12. PANTOPRAZOL [Concomitant]
     Active Substance: PANTOPRAZOLE SODIUM
     Indication: PRODUCT USED FOR UNKNOWN INDICATION
     Dosage: 40 MG, 1-0-0-0, TABLET
     Route: 048
  13. METOPROLOL. [Concomitant]
     Active Substance: METOPROLOL
     Indication: PRODUCT USED FOR UNKNOWN INDICATION
     Dosage: 50 MG, 0.5-0-0-0, TABLET
     Route: 048

REACTIONS (2)
  - Systemic infection [Unknown]
  - Liver function test abnormal [Unknown]
